FAERS Safety Report 21942026 (Version 1)
Quarter: 2023Q1

REPORT INFORMATION
  Report Type: Report from Study
  Country: US (occurrence: US)
  Receive Date: 20230202
  Receipt Date: 20230202
  Transmission Date: 20230417
  Serious: No
  Sender: FDA-Public Use
  Company Number: US-EXELIXIS-CABO-22056359

PATIENT
  Sex: Male
  Weight: 108.84 kg

DRUGS (12)
  1. CABOMETYX [Suspect]
     Active Substance: CABOZANTINIB S-MALATE
     Indication: Renal cell carcinoma
     Dosage: 40 MG, QD
     Route: 048
  2. FLOMAX [Concomitant]
     Active Substance: TAMSULOSIN HYDROCHLORIDE
  3. ASPIRIN [Concomitant]
     Active Substance: ASPIRIN
  4. PREGABALIN [Concomitant]
     Active Substance: PREGABALIN
  5. CLARITIN [Concomitant]
     Active Substance: LORATADINE
  6. IRON [Concomitant]
     Active Substance: IRON
  7. FLECAINIDE [Concomitant]
     Active Substance: FLECAINIDE
  8. BISOPROLOL [Concomitant]
     Active Substance: BISOPROLOL
  9. COLACE [Concomitant]
     Active Substance: DOCUSATE SODIUM
  10. ZOFRAN [Concomitant]
     Active Substance: ONDANSETRON HYDROCHLORIDE
  11. PROTONIX [Concomitant]
     Active Substance: PANTOPRAZOLE SODIUM
  12. PERCOCET [Concomitant]
     Active Substance: ACETAMINOPHEN\OXYCODONE HYDROCHLORIDE

REACTIONS (1)
  - Impaired healing [Not Recovered/Not Resolved]
